FAERS Safety Report 23452459 (Version 1)
Quarter: 2024Q1

REPORT INFORMATION
  Report Type: Spontaneous
  Country: US (occurrence: None)
  Receive Date: 20240128
  Receipt Date: 20240128
  Transmission Date: 20240410
  Serious: Yes (Life-Threatening)
  Sender: FDA-Public Use
  Company Number: None

PATIENT
  Age: 54 Year
  Sex: Male
  Weight: 223.5 kg

DRUGS (1)
  1. MOUNJARO [Suspect]
     Active Substance: TIRZEPATIDE
     Indication: Weight control
     Dosage: OTHER FREQUENCY : WEEKLY -FIRST DOE;?
     Route: 058

REACTIONS (4)
  - Flushing [None]
  - Taste disorder [None]
  - Swollen tongue [None]
  - Throat irritation [None]

NARRATIVE: CASE EVENT DATE: 20240128
